FAERS Safety Report 6884352-9 (Version None)
Quarter: 2010Q3

REPORT INFORMATION
  Report Type: 
  Country: None (occurrence: None)
  Receive Date: 20100729
  Receipt Date: 20070702
  Transmission Date: 20110219
  Serious: No
  Sender: FDA-Public Use
  Company Number: US-PFIZER INC-2007055327

PATIENT
  Sex: Female
  Weight: 90.9 kg

DRUGS (3)
  1. CELEBREX [Suspect]
     Indication: BACK INJURY
     Dates: start: 20030101
  2. ADVIL LIQUI-GELS [Concomitant]
  3. VITAMINS [Concomitant]

REACTIONS (2)
  - HOT FLUSH [None]
  - RASH [None]
